FAERS Safety Report 8850551 (Version 2)
Quarter: 2013Q2

REPORT INFORMATION
  Report Type: Report from Study
  Country: US (occurrence: US)
  Receive Date: 20121019
  Receipt Date: 20130409
  Transmission Date: 20140414
  Serious: Yes (Other)
  Sender: FDA-Public Use
  Company Number: US-US-EMD SERONO, INC.-7167831

PATIENT
  Age: 45 Year
  Sex: Female
  Weight: 104 kg

DRUGS (3)
  1. REBIF [Suspect]
     Indication: MULTIPLE SCLEROSIS
     Route: 058
     Dates: start: 20120516, end: 201302
  2. TYLENOL EXTRA STRENGTH [Concomitant]
     Indication: PREMEDICATION
  3. NORTRIPTYLINE [Concomitant]
     Indication: MIGRAINE

REACTIONS (2)
  - Intervertebral disc protrusion [Recovered/Resolved]
  - Influenza like illness [Not Recovered/Not Resolved]
